FAERS Safety Report 18140023 (Version 2)
Quarter: 2022Q1

REPORT INFORMATION
  Report Type: Other
  Country: NO (occurrence: NO)
  Receive Date: 20200812
  Receipt Date: 20220214
  Transmission Date: 20220423
  Serious: Yes (Other)
  Sender: FDA-Public Use
  Company Number: NO-002147023-NVSC2020NO214978

PATIENT
  Age: 40 Year
  Sex: Female

DRUGS (1)
  1. RITUXIMAB [Suspect]
     Active Substance: RITUXIMAB
     Indication: Multiple sclerosis
     Route: 041

REACTIONS (2)
  - Lyme disease [Recovered/Resolved]
  - Off label use [Unknown]
